FAERS Safety Report 10388793 (Version 1)
Quarter: 2014Q1

REPORT INFORMATION
  Report Type: Spontaneous
  Country: US (occurrence: None)
  Receive Date: 20140306
  Receipt Date: 20140306
  Transmission Date: 20141002
  Serious: Yes (Hospitalization, Other)
  Sender: FDA-Public Use
  Company Number: 163-21880-13064037

PATIENT
  Age: 78 Year
  Sex: Male

DRUGS (12)
  1. REVLIMID (LENALIDOMIDE) (15 MILLIGRAM, CAPSULES) [Suspect]
     Indication: PLASMA CELL MYELOMA
     Dosage: 15 MG, 21 IN 28 D, PO?TEMPORARILY INTERRUPTED
     Route: 048
     Dates: start: 20130607
  2. LOPRESSOR (METOPROLOL TARTRATE) [Concomitant]
  3. NORVASC (AMLODIPINE BESILATE) [Concomitant]
  4. LIPITOR (ATORVASTATIN) [Concomitant]
  5. MICARDIS (TELMISARTAN) [Concomitant]
  6. VITAMIN D2 (ERGOCALCIFEROL) [Concomitant]
  7. DEXAMATHASONE [Concomitant]
  8. DICLOFENAC SODIUM [Concomitant]
  9. TRIAMCINOLONE ACETONIDE [Concomitant]
  10. MAXZIDE (DYAZIDE) [Concomitant]
  11. ERGOCALCIFEROL [Concomitant]
  12. GABAPENTIN [Concomitant]

REACTIONS (7)
  - Cardiac failure congestive [None]
  - Oedema peripheral [None]
  - Blood glucose increased [None]
  - Oedema peripheral [None]
  - Pain in extremity [None]
  - Tooth abscess [None]
  - Gout [None]
